FAERS Safety Report 4958975-8 (Version None)
Quarter: 2006Q1

REPORT INFORMATION
  Report Type: 
  Country: None (occurrence: None)
  Receive Date: 20060328
  Receipt Date: 20060316
  Transmission Date: 20060701
  Serious: Yes (Hospitalization, Other)
  Sender: FDA-Public Use
  Company Number: 2005-03-1771

PATIENT
  Age: 32 Year
  Sex: Male

DRUGS (1)
  1. LOTRISONE [Suspect]
     Indication: TINEA CRURIS
     Dosage: TOP-DERM
     Route: 061
     Dates: start: 20050318

REACTIONS (9)
  - ABDOMINAL PAIN [None]
  - ANAPHYLACTIC REACTION [None]
  - ANOREXIA [None]
  - ARTHRALGIA [None]
  - ASTHENIA [None]
  - EPISTAXIS [None]
  - HAEMORRHAGE [None]
  - PAIN IN EXTREMITY [None]
  - PYREXIA [None]
